FAERS Safety Report 9286087 (Version 1)
Quarter: 2013Q2

REPORT INFORMATION
  Report Type: Spontaneous
  Country: AU (occurrence: AU)
  Receive Date: 20130513
  Receipt Date: 20130513
  Transmission Date: 20140414
  Serious: Yes (Hospitalization, Other)
  Sender: FDA-Public Use
  Company Number: AU-TEVA-403722ISR

PATIENT
  Age: 80 Year
  Sex: Male
  Weight: 75 kg

DRUGS (13)
  1. AZILECT [Suspect]
     Dosage: 1 MILLIGRAM
     Dates: start: 20130131, end: 20130225
  2. SERTRALINE HYDROCHLORIDE [Suspect]
     Dosage: 100 MILLIGRAM
     Dates: start: 20130204, end: 20130225
  3. ATORVASTATIN [Concomitant]
     Dosage: 40 MILLIGRAM
  4. CALTRATE WITH VITAMIN D [Concomitant]
  5. CLOPIDOGREL [Concomitant]
  6. COLOXYL [Concomitant]
     Dosage: 120 MILLIGRAM DAILY;
  7. FLUDROCORTISONE [Concomitant]
  8. GABAPENTIN [Concomitant]
     Dosage: 100 MILLIGRAM
     Dates: start: 20130214, end: 20130225
  9. MADOPAR [Concomitant]
     Dosage: 100 MILLIGRAM
  10. OXYBUTYNIN HYDROCHLORIDE [Concomitant]
  11. PANTOPRAZOLE [Concomitant]
     Dosage: 40 MILLIGRAM
  12. PARACETAMOL [Concomitant]
  13. SINEMET CR [Concomitant]
     Dosage: 200 DOSAGE UNIT

REACTIONS (8)
  - Serotonin syndrome [Recovered/Resolved]
  - Confusional state [Unknown]
  - Somnolence [Unknown]
  - Myoclonus [Unknown]
  - Muscle rigidity [Unknown]
  - Hypertonia [Unknown]
  - Clonus [Unknown]
  - Cerebellar infarction [Unknown]
